FAERS Safety Report 14274424 (Version 1)
Quarter: 2017Q4

REPORT INFORMATION
  Report Type: Spontaneous
  Country: FR (occurrence: FR)
  Receive Date: 20171211
  Receipt Date: 20171211
  Transmission Date: 20180321
  Serious: No
  Sender: FDA-Public Use
  Company Number: FR-OTSUKA-15688922

PATIENT
  Age: 35 Year
  Sex: Female

DRUGS (11)
  1. CARDENSIEL [Concomitant]
     Active Substance: BISOPROLOL FUMARATE
  2. MEPRONIZINE [Concomitant]
     Active Substance: ACEPROMETAZINE MALEATE\MEPROBAMATE
  3. TRIATEC [Concomitant]
     Active Substance: RAMIPRIL
  4. ABILIFY [Suspect]
     Active Substance: ARIPIPRAZOLE
     Route: 065
  5. ESOMEPRAZOLE [Concomitant]
     Active Substance: ESOMEPRAZOLE
  6. LIORESAL [Concomitant]
     Active Substance: BACLOFEN
  7. ZOPICLONE [Concomitant]
     Active Substance: ZOPICLONE
  8. VALIUM [Concomitant]
     Active Substance: DIAZEPAM
  9. IXEL [Concomitant]
     Active Substance: MILNACIPRAN HYDROCHLORIDE
  10. THERALENE [Concomitant]
     Active Substance: TRIMEPRAZINE
  11. LAMOTRIGINE. [Concomitant]
     Active Substance: LAMOTRIGINE

REACTIONS (1)
  - Dry mouth [Unknown]
